FAERS Safety Report 12096835 (Version 1)
Quarter: 2016Q1

REPORT INFORMATION
  Report Type: Other
  Country: US (occurrence: US)
  Receive Date: 20160220
  Receipt Date: 20160220
  Transmission Date: 20160526
  Serious: Yes (Hospitalization, Other)
  Sender: FDA-Public Use
  Company Number: US-ACORDA-ACO_108623_2015

PATIENT
  Age: 66 Year
  Sex: Female
  Weight: 73.16 kg

DRUGS (1)
  1. AMPYRA [Suspect]
     Active Substance: DALFAMPRIDINE
     Indication: GAIT DISTURBANCE
     Dosage: 10 MG, BID
     Route: 048
     Dates: start: 2010

REACTIONS (11)
  - Dysphagia [Unknown]
  - Diplegia [Unknown]
  - Monoplegia [Unknown]
  - Multiple sclerosis [Unknown]
  - Dyspnoea [Unknown]
  - Urinary tract infection [Not Recovered/Not Resolved]
  - Fatigue [Unknown]
  - Influenza [Recovered/Resolved]
  - Food allergy [Unknown]
  - Therapeutic response unexpected [Unknown]
  - Pyrexia [Unknown]

NARRATIVE: CASE EVENT DATE: 201410
